FAERS Safety Report 5885591-6 (Version None)
Quarter: 2008Q3

REPORT INFORMATION
  Report Type: 
  Country: None (occurrence: None)
  Receive Date: 20080916
  Receipt Date: 20080910
  Transmission Date: 20090109
  Serious: Yes (Hospitalization)
  Sender: FDA-Public Use
  Company Number: FR-WYE-G01937608

PATIENT
  Sex: Male
  Weight: 73 kg

DRUGS (7)
  1. TORISEL [Suspect]
     Indication: RENAL CANCER METASTATIC
     Dosage: 25 MG EVERY 1 CYC
     Route: 042
     Dates: start: 20080605, end: 20080710
  2. TRAMADOL HCL [Concomitant]
     Dosage: UNKNOWN
     Route: 048
  3. KALEORID [Concomitant]
     Dosage: UNKNOWN
     Route: 048
  4. MOPRAL [Concomitant]
     Dosage: 20 MG STRENGTH; DOSE UNKNOWN
     Route: 048
  5. SOLUPRED [Concomitant]
     Dosage: 20 MG STRENGTH; DOSE UNKNOWN
     Route: 048
  6. METEOSPASMYL [Concomitant]
     Dosage: UNKNOWN
     Route: 048
  7. FORLAX [Concomitant]
     Dosage: UNKNOWN
     Route: 048

REACTIONS (2)
  - ABDOMINAL PAIN [None]
  - ABDOMINAL RIGIDITY [None]
